FAERS Safety Report 11809915 (Version 5)
Quarter: 2018Q2

REPORT INFORMATION
  Report Type: Report from Study
  Country: CA (occurrence: CA)
  Receive Date: 20151208
  Receipt Date: 20180502
  Transmission Date: 20180711
  Serious: Yes (Other)
  Sender: FDA-Public Use
  Company Number: CA-ROCHE-1576938

PATIENT
  Age: 67 Year
  Sex: Female

DRUGS (18)
  1. PLAQUINOL [Concomitant]
     Active Substance: HYDROXYCHLOROQUINE SULFATE
  2. CYTOTEC [Concomitant]
     Active Substance: MISOPROSTOL
  3. LOSEC [Concomitant]
     Active Substance: OMEPRAZOLE
  4. DIPHENHYDRAMINE HCL [Concomitant]
     Active Substance: DIPHENHYDRAMINE HYDROCHLORIDE
     Indication: PREMEDICATION
     Route: 048
     Dates: start: 20140625
  5. ENBREL [Concomitant]
     Active Substance: ETANERCEPT
  6. ARTHROTEC [Concomitant]
     Active Substance: DICLOFENAC SODIUM\MISOPROSTOL
  7. DICLOFENAC [Concomitant]
     Active Substance: DICLOFENAC
  8. ZOPLICONE [Concomitant]
     Active Substance: ZOPICLONE
  9. VOLTAREN [Concomitant]
     Active Substance: DICLOFENAC SODIUM
  10. ZOLOFT [Concomitant]
     Active Substance: SERTRALINE HYDROCHLORIDE
  11. ACETAMINOPHEN. [Concomitant]
     Active Substance: ACETAMINOPHEN
     Indication: PREMEDICATION
     Route: 048
     Dates: start: 20140625
  12. ACTONEL [Concomitant]
     Active Substance: RISEDRONATE SODIUM
  13. CRESTOR [Concomitant]
     Active Substance: ROSUVASTATIN CALCIUM
  14. RITUXAN [Suspect]
     Active Substance: RITUXIMAB
     Indication: RHEUMATOID ARTHRITIS
     Dosage: FREQUENCY: DAY 1 AND 15?LAST DOSE OF RITUXIMAB  28/MAY/2015
     Route: 042
     Dates: start: 20140625
  15. METHYLPREDNISOLONE. [Concomitant]
     Active Substance: METHYLPREDNISOLONE
     Indication: PREMEDICATION
     Route: 042
     Dates: start: 20140625
  16. ARAVA [Concomitant]
     Active Substance: LEFLUNOMIDE
  17. METFORMIN [Concomitant]
     Active Substance: METFORMIN HYDROCHLORIDE
     Indication: DIABETES MELLITUS
  18. LYRICA [Concomitant]
     Active Substance: PREGABALIN

REACTIONS (11)
  - Hypertension [Unknown]
  - Blood pressure increased [Unknown]
  - Rheumatoid arthritis [Not Recovered/Not Resolved]
  - Throat irritation [Recovered/Resolved]
  - Joint swelling [Not Recovered/Not Resolved]
  - Post procedural swelling [Unknown]
  - Squamous cell carcinoma [Not Recovered/Not Resolved]
  - Headache [Recovering/Resolving]
  - Oxygen saturation decreased [Unknown]
  - Oxygen saturation decreased [Unknown]
  - Diabetes mellitus [Not Recovered/Not Resolved]

NARRATIVE: CASE EVENT DATE: 201412
